FAERS Safety Report 10530508 (Version 1)
Quarter: 2014Q4

REPORT INFORMATION
  Report Type: Spontaneous
  Country: US (occurrence: None)
  Receive Date: 20141020
  Receipt Date: 20141020
  Transmission Date: 20150528
  Serious: Yes (Hospitalization)
  Sender: FDA-Public Use
  Company Number: None

PATIENT
  Age: 15 Year
  Sex: Female
  Weight: 68.04 kg

DRUGS (1)
  1. ZENATANE [Suspect]
     Active Substance: ISOTRETINOIN
     Indication: ACNE
     Dosage: 1 PILL; ONCE DAILY
     Route: 048
     Dates: start: 20140301, end: 20140919

REACTIONS (3)
  - Arthralgia [None]
  - Gastric ulcer [None]
  - Abdominal pain upper [None]

NARRATIVE: CASE EVENT DATE: 20140925
